FAERS Safety Report 6407187-X (Version None)
Quarter: 2009Q4

REPORT INFORMATION
  Report Type: 
  Country: None (occurrence: None)
  Receive Date: 20091020
  Receipt Date: 20091012
  Transmission Date: 20100525
  Serious: No
  Sender: FDA-Public Use
  Company Number: US-BAYER-200932267NA

PATIENT
  Age: 24 Year
  Sex: Female
  Weight: 84 kg

DRUGS (1)
  1. MIRENA [Suspect]
     Indication: CONTRACEPTION
     Dosage: CONTINUOUS
     Route: 015
     Dates: start: 20061019, end: 20090101

REACTIONS (2)
  - MEDICAL DEVICE COMPLICATION [None]
  - PREGNANCY WITH CONTRACEPTIVE DEVICE [None]
